FAERS Safety Report 24407681 (Version 1)
Quarter: 2024Q4

REPORT INFORMATION
  Report Type: Spontaneous
  Country: US (occurrence: US)
  Receive Date: 20241007
  Receipt Date: 20241007
  Transmission Date: 20250115
  Serious: No
  Sender: RECKITT BENCKISER
  Company Number: US-INDIVIOR US-INDV-142431-2024

PATIENT
  Sex: Male

DRUGS (6)
  1. SUBLOCADE [Suspect]
     Active Substance: BUPRENORPHINE
     Indication: Product used for unknown indication
     Dosage: 300 MILLIGRAM, QMO
     Route: 065
     Dates: start: 20230920
  2. SUBLOCADE [Suspect]
     Active Substance: BUPRENORPHINE
     Dosage: 300 MILLIGRAM, QMO
     Route: 065
     Dates: start: 20231010
  3. SUBLOCADE [Suspect]
     Active Substance: BUPRENORPHINE
     Indication: Product used for unknown indication
     Dosage: 100 MILLIGRAM, QMO
     Route: 065
     Dates: start: 20231107
  4. SUBLOCADE [Suspect]
     Active Substance: BUPRENORPHINE
     Dosage: 100 MILLIGRAM, QMO
     Route: 065
     Dates: start: 20231205
  5. SUBLOCADE [Suspect]
     Active Substance: BUPRENORPHINE
     Dosage: 100 MILLIGRAM, QMO
     Route: 065
     Dates: start: 20240102
  6. SUBOXONE [Suspect]
     Active Substance: BUPRENORPHINE HYDROCHLORIDE\NALOXONE HYDROCHLORIDE
     Indication: Supplementation therapy
     Dosage: 4 MILLIGRAM, BID (4 MG IN THE MORNING, 4 MG IN THE NIGHT)
     Route: 060
     Dates: start: 2023

REACTIONS (3)
  - Inappropriate schedule of product administration [Recovered/Resolved]
  - Drug withdrawal syndrome [Not Recovered/Not Resolved]
  - Inappropriate schedule of product administration [Unknown]

NARRATIVE: CASE EVENT DATE: 20230101
